FAERS Safety Report 18702152 (Version 1)
Quarter: 2021Q1

REPORT INFORMATION
  Report Type: Other
  Country: GB (occurrence: GB)
  Receive Date: 20210105
  Receipt Date: 20210105
  Transmission Date: 20210419
  Serious: Yes (Other)
  Sender: FDA-Public Use
  Company Number: GB-STRIDES ARCOLAB LIMITED-2020SP016648

PATIENT
  Age: 59 Year
  Sex: Female
  Weight: 74 kg

DRUGS (15)
  1. ANUSOL [BISMUTH OXIDE;BISMUTH SUBGALLATE;MYROXYLON BALSAMUM BALSAM;ZIN [Concomitant]
     Indication: PRODUCT USED FOR UNKNOWN INDICATION
     Dosage: 2 DOSAGE FORM AS NECESSARY, INSERT
     Route: 065
     Dates: start: 20201007, end: 20201013
  2. AMITRIPTYLINE HYDROCHLORIDE. [Concomitant]
     Active Substance: AMITRIPTYLINE HYDROCHLORIDE
     Indication: PRODUCT USED FOR UNKNOWN INDICATION
     Dosage: 1 DOSAGE FORM PER DAY, EACH NIGHT
     Route: 065
     Dates: start: 20200921, end: 20201019
  3. LANSOPRAZOLE. [Concomitant]
     Active Substance: LANSOPRAZOLE
     Indication: PRODUCT USED FOR UNKNOWN INDICATION
     Dosage: 1 DOSAGE FORM PER DAY
     Route: 065
     Dates: start: 20201102
  4. SODIUM ALGINATE [Concomitant]
     Active Substance: SODIUM ALGINATE
     Indication: PRODUCT USED FOR UNKNOWN INDICATION
     Dosage: 10 MILLILITER PER DAY IN THE MORNING
     Route: 065
     Dates: start: 20200721
  5. INFLUENZA VIRUS [Concomitant]
     Active Substance: INFLUENZA VIRUS VACCINE
     Indication: PRODUCT USED FOR UNKNOWN INDICATION
     Dosage: UNK
     Route: 065
     Dates: start: 20201205, end: 20201206
  6. HYLO?FORTE [Concomitant]
     Active Substance: HYALURONATE SODIUM
     Indication: PRODUCT USED FOR UNKNOWN INDICATION
     Dosage: 2 DROP, ONE DROP EACH EYE AS NECESSARY
     Dates: start: 20200721
  7. DULOXETINE. [Concomitant]
     Active Substance: DULOXETINE
     Indication: PRODUCT USED FOR UNKNOWN INDICATION
     Dosage: 1 DOSAGE FORM PER DAY
     Route: 065
     Dates: start: 20200928, end: 20201026
  8. ACICLOVIR [Concomitant]
     Active Substance: ACYCLOVIR
     Indication: PRODUCT USED FOR UNKNOWN INDICATION
     Dosage: 5 DOSAGE FORM PER DAY
     Route: 065
     Dates: start: 20201119, end: 20201124
  9. IBUPROFEN. [Concomitant]
     Active Substance: IBUPROFEN
     Dosage: 3 DOSAGE FORM PER DAY, APPLY, TO AFFECTED AREA
     Route: 065
     Dates: start: 20200917, end: 20201001
  10. DOXYCYCLINE. [Concomitant]
     Active Substance: DOXYCYCLINE
     Indication: PRODUCT USED FOR UNKNOWN INDICATION
     Dosage: 2 DOSAGE FORM PER DAY
     Route: 065
     Dates: start: 20200928, end: 20201005
  11. GABAPENTIN. [Suspect]
     Active Substance: GABAPENTIN
     Indication: PRODUCT USED FOR UNKNOWN INDICATION
     Dosage: UNK, TAKE ONE DAILY FOR 2?3 DAYS
     Route: 065
     Dates: start: 20201207
  12. GABAPENTIN. [Suspect]
     Active Substance: GABAPENTIN
     Dosage: UNK, THEN ONE TWICE A DAY FOR 2?3 DAYS
     Route: 065
     Dates: start: 202012
  13. NAPROXEN. [Concomitant]
     Active Substance: NAPROXEN
     Indication: PRODUCT USED FOR UNKNOWN INDICATION
     Dosage: 4 DOSAGE FORM AS NECESSARY WITH FOOD
     Route: 065
     Dates: start: 20201102
  14. IBUPROFEN. [Concomitant]
     Active Substance: IBUPROFEN
     Indication: PRODUCT USED FOR UNKNOWN INDICATION
     Dosage: 3 DOSAGE FORM AS NECESSARY
     Route: 065
     Dates: start: 20200917, end: 20200924
  15. LATANOPROST. [Concomitant]
     Active Substance: LATANOPROST
     Indication: PRODUCT USED FOR UNKNOWN INDICATION
     Dosage: 1 DROP PER DAY AT NIGHT ? LEFT EYE
     Dates: start: 20200721

REACTIONS (2)
  - Rash [Recovered/Resolved]
  - Chest discomfort [Unknown]

NARRATIVE: CASE EVENT DATE: 202012
